FAERS Safety Report 23869808 (Version 1)
Quarter: 2024Q2

REPORT INFORMATION
  Report Type: Report from Study
  Country: US (occurrence: None)
  Receive Date: 20240517
  Receipt Date: 20240517
  Transmission Date: 20240716
  Serious: Yes (Other)
  Sender: FDA-Public Use
  Company Number: 2024A110733

PATIENT
  Age: 23645 Day
  Sex: Female

DRUGS (1)
  1. TAGRISSO [Suspect]
     Active Substance: OSIMERTINIB
     Indication: Non-small cell lung cancer
     Route: 048
     Dates: start: 20240210

REACTIONS (5)
  - Blood pressure systolic increased [Not Recovered/Not Resolved]
  - Palpitations [Not Recovered/Not Resolved]
  - Sciatica [Not Recovered/Not Resolved]
  - Rash [Recovered/Resolved]
  - Dermatitis acneiform [Unknown]

NARRATIVE: CASE EVENT DATE: 20240210
